FAERS Safety Report 10384319 (Version 1)
Quarter: 2014Q3

REPORT INFORMATION
  Report Type: Spontaneous
  Country: US (occurrence: US)
  Receive Date: 20140814
  Receipt Date: 20140814
  Transmission Date: 20150326
  Serious: No
  Sender: FDA-Public Use
  Company Number: US-PFIZER INC-2014224046

PATIENT
  Sex: Female

DRUGS (3)
  1. CYTOTEC [Suspect]
     Active Substance: MISOPROSTOL
     Indication: ABORTION INDUCED
     Dosage: 400 UG, SINGLE
  2. CYTOTEC [Suspect]
     Active Substance: MISOPROSTOL
     Dosage: 400 UG, SINGLE
     Route: 067
  3. CYTOTEC [Suspect]
     Active Substance: MISOPROSTOL
     Dosage: 400 UG, SINGLE

REACTIONS (3)
  - Vaginal haemorrhage [Unknown]
  - Drug ineffective for unapproved indication [Unknown]
  - Incorrect route of drug administration [Unknown]
